FAERS Safety Report 8172265-4 (Version None)
Quarter: 2012Q1

REPORT INFORMATION
  Report Type: 
  Country: None (occurrence: None)
  Receive Date: 20120229
  Receipt Date: 20120221
  Transmission Date: 20120608
  Serious: Yes (Other)
  Sender: FDA-Public Use
  Company Number: US-BIOGENIDEC-2012BI004453

PATIENT
  Age: 59 Year
  Sex: Female

DRUGS (1)
  1. AVONEX [Suspect]
     Indication: MULTIPLE SCLEROSIS
     Route: 030
     Dates: start: 20110412

REACTIONS (4)
  - SUPRAVENTRICULAR EXTRASYSTOLES [None]
  - OEDEMA PERIPHERAL [None]
  - VENTRICULAR EXTRASYSTOLES [None]
  - DIZZINESS [None]
